FAERS Safety Report 8108531-8 (Version None)
Quarter: 2012Q1

REPORT INFORMATION
  Report Type: 
  Country: None (occurrence: None)
  Receive Date: 20120202
  Receipt Date: 20120131
  Transmission Date: 20120608
  Serious: Yes (Death)
  Sender: FDA-Public Use
  Company Number: PHHY2012EC008300

PATIENT
  Sex: Female

DRUGS (3)
  1. GENTEAL [Concomitant]
  2. EXELON [Suspect]
     Indication: DEMENTIA ALZHEIMER'S TYPE
     Dosage: 1 PATCH OF 9.5MG/10CM DAILY
     Route: 062
     Dates: start: 20110814
  3. VITALUX PLUS [Concomitant]
     Dosage: 1 TABLET DAILY

REACTIONS (1)
  - DEATH [None]
